FAERS Safety Report 5663437-9 (Version None)
Quarter: 2008Q1

REPORT INFORMATION
  Report Type: 
  Country: None (occurrence: None)
  Receive Date: 20080313
  Receipt Date: 20080304
  Transmission Date: 20080703
  Serious: Yes (Hospitalization)
  Sender: FDA-Public Use
  Company Number: GR-ABBOTT-08P-066-0440992-00

PATIENT
  Age: 43 Year
  Sex: Female
  Weight: 54 kg

DRUGS (4)
  1. HUMIRA [Suspect]
     Indication: RHEUMATOID ARTHRITIS
     Route: 058
     Dates: start: 20070330
  2. METHOTREXATE [Concomitant]
     Indication: RHEUMATOID ARTHRITIS
     Route: 048
     Dates: start: 20070330
  3. AMINOSALICYLIC ACID [Concomitant]
     Indication: COLITIS ULCERATIVE
     Route: 048
     Dates: start: 19930101
  4. METHYLPREDNISOLONE [Concomitant]
     Indication: COLITIS ULCERATIVE
     Route: 048
     Dates: start: 20020101

REACTIONS (4)
  - COLITIS ULCERATIVE [None]
  - FISTULA [None]
  - PERIARTICULAR DISORDER [None]
  - PERIRECTAL ABSCESS [None]
